FAERS Safety Report 23500747 (Version 1)
Quarter: 2024Q1

REPORT INFORMATION
  Report Type: Spontaneous
  Country: GB (occurrence: GB)
  Receive Date: 20240208
  Receipt Date: 20240208
  Transmission Date: 20240409
  Serious: Yes (Disabling, Other)
  Sender: FDA-Public Use
  Company Number: None

PATIENT
  Sex: Female
  Weight: 57 kg

DRUGS (2)
  1. DOXYCYCLINE [Suspect]
     Active Substance: DOXYCYCLINE
     Indication: Ear infection
     Dosage: 200MG FIRST DAY THEN 100MG ONCE DAY FOR 6 DAYS
  2. DOXYCYCLINE [Suspect]
     Active Substance: DOXYCYCLINE
     Dosage: 200MG FIRST DAY THEN 100MG ONCE DAY FOR 6 DAYS
     Dates: start: 20240127, end: 20240131

REACTIONS (3)
  - Vertigo [Recovering/Resolving]
  - Fall [Recovering/Resolving]
  - Head discomfort [Recovering/Resolving]
